FAERS Safety Report 21301952 (Version 1)
Quarter: 2022Q3

REPORT INFORMATION
  Report Type: Spontaneous
  Country: PT (occurrence: PT)
  Receive Date: 20220907
  Receipt Date: 20220907
  Transmission Date: 20221027
  Serious: Yes (Hospitalization, Other)
  Sender: FDA-Public Use
  Company Number: PT-MLMSERVICE-20220823-3747105-1

PATIENT
  Age: 16 Year
  Sex: Male

DRUGS (3)
  1. RITUXIMAB [Suspect]
     Active Substance: RITUXIMAB
     Indication: Burkitt^s lymphoma stage IV
     Dosage: UNK, CYCLIC
  2. ETOPOSIDE [Suspect]
     Active Substance: ETOPOSIDE
     Indication: Burkitt^s lymphoma stage IV
     Dosage: UNK, CYCLIC
  3. CYTARABINE [Suspect]
     Active Substance: CYTARABINE
     Indication: Burkitt^s lymphoma stage IV
     Dosage: UNK, CYCLIC

REACTIONS (2)
  - Wernicke^s encephalopathy [Recovering/Resolving]
  - Pancytopenia [Unknown]
